FAERS Safety Report 7345456-X (Version None)
Quarter: 2011Q1

REPORT INFORMATION
  Report Type: 
  Country: None (occurrence: None)
  Receive Date: 20110310
  Receipt Date: 20110307
  Transmission Date: 20110831
  Serious: Yes (Other)
  Sender: FDA-Public Use
  Company Number: CZ-PFIZER INC-2011043073

PATIENT
  Age: 67 Year
  Sex: Male

DRUGS (1)
  1. TIGECYCLINE [Suspect]
     Indication: PNEUMONIA
     Dosage: UNK
     Dates: start: 20090101, end: 20090515

REACTIONS (1)
  - PATHOGEN RESISTANCE [None]
